FAERS Safety Report 20025123 (Version 1)
Quarter: 2021Q4

REPORT INFORMATION
  Report Type: Spontaneous
  Country: CA (occurrence: CA)
  Receive Date: 20211102
  Receipt Date: 20211102
  Transmission Date: 20220303
  Serious: No
  Sender: FDA-Public Use
  Company Number: CA-JAZZ-2021-CA-017118

PATIENT
  Sex: Male

DRUGS (1)
  1. XYREM [Suspect]
     Active Substance: SODIUM OXYBATE
     Indication: Somnolence
     Dosage: UNKNOWN DOSE AND FREQUENCY
     Route: 048

REACTIONS (2)
  - Pain [Unknown]
  - Somnolence [Unknown]
